FAERS Safety Report 24940339 (Version 2)
Quarter: 2025Q2

REPORT INFORMATION
  Report Type: Report from Study
  Country: US (occurrence: US)
  Receive Date: 20250207
  Receipt Date: 20250605
  Transmission Date: 20250716
  Serious: Yes (Other)
  Sender: LEO PHARM
  Company Number: US-LEO Pharma-377371

PATIENT
  Age: 89 Year
  Sex: Female

DRUGS (2)
  1. ADBRY [Suspect]
     Active Substance: TRALOKINUMAB-LDRM
     Indication: Dermatitis atopic
     Route: 058
     Dates: start: 20241101
  2. ADBRY [Suspect]
     Active Substance: TRALOKINUMAB-LDRM
     Indication: Dermatitis atopic

REACTIONS (6)
  - Deafness [Unknown]
  - Blood cholesterol increased [Unknown]
  - Dementia [Unknown]
  - Personality disorder [Unknown]
  - Skin disorder [Unknown]
  - Rash [Recovered/Resolved]
